FAERS Safety Report 15019554 (Version 2)
Quarter: 2018Q2

REPORT INFORMATION
  Report Type: Report from Study
  Country: US (occurrence: US)
  Receive Date: 20180618
  Receipt Date: 20180619
  Transmission Date: 20180711
  Serious: Yes (Death)
  Sender: FDA-Public Use
  Company Number: US-ROCHE-2141174

PATIENT
  Sex: Male

DRUGS (6)
  1. PREDNISONE. [Concomitant]
     Active Substance: PREDNISONE
     Route: 048
  2. BACTRIM [Concomitant]
     Active Substance: SULFAMETHOXAZOLE\TRIMETHOPRIM
     Dosage: 800-160MG PER TABLET?ON MONDAY, WEDNESDAY, AND FRIDAY
     Route: 048
     Dates: start: 20170714
  3. ESBRIET [Suspect]
     Active Substance: PIRFENIDONE
     Indication: IDIOPATHIC PULMONARY FIBROSIS
     Dosage: DAY 1 TO 7: 1 CASPULE BY MOUTH 3 TIMES A DAY WITH FOOD?DAY 8 TO 14: 2 CASPULE BY MOUTH 3 TIMES A DAY
     Route: 048
  4. BREO ELLIPTA [Concomitant]
     Active Substance: FLUTICASONE FUROATE\VILANTEROL TRIFENATATE
     Dosage: 200/25 MCG/INH AEPB INHALER
     Route: 048
  5. OXYGEN. [Concomitant]
     Active Substance: OXYGEN
  6. SPIRIVA [Concomitant]
     Active Substance: TIOTROPIUM BROMIDE MONOHYDRATE
     Dosage: ONCE A DAY
     Route: 065

REACTIONS (1)
  - Death [Fatal]
